FAERS Safety Report 4433593-9 (Version None)
Quarter: 2004Q3

REPORT INFORMATION
  Report Type: 
  Country: None (occurrence: None)
  Receive Date: 20040825
  Receipt Date: 20040825
  Transmission Date: 20050211
  Serious: Yes (Life-Threatening)
  Sender: FDA-Public Use
  Company Number: None

PATIENT
  Age: 80 Year
  Sex: Male

DRUGS (2)
  1. ZYVOX [Suspect]
     Indication: BACTERAEMIA
     Dosage: 600 MG IV BID
     Route: 042
     Dates: start: 20040804, end: 20040805
  2. ZYVOX [Suspect]
     Indication: GLYCOPEPTIDE ANTIBIOTIC RESISTANT ENTEROCOCCAL INFECTION
     Dosage: 600 MG IV BID
     Route: 042
     Dates: start: 20040804, end: 20040805

REACTIONS (1)
  - THROMBOCYTOPENIA [None]
